FAERS Safety Report 5897628-9 (Version None)
Quarter: 2008Q3

REPORT INFORMATION
  Report Type: 
  Country: None (occurrence: None)
  Receive Date: 20080925
  Receipt Date: 20080915
  Transmission Date: 20090109
  Serious: Yes (Hospitalization)
  Sender: FDA-Public Use
  Company Number: US-AMGEN-QUU307886

PATIENT
  Sex: Female

DRUGS (2)
  1. ENBREL [Suspect]
     Indication: RHEUMATOID ARTHRITIS
     Route: 058
     Dates: start: 20050101
  2. PLAQUENIL [Concomitant]

REACTIONS (7)
  - ERYTHEMA [None]
  - INDURATION [None]
  - KNEE ARTHROPLASTY [None]
  - LOCALISED OEDEMA [None]
  - PAIN [None]
  - PRURITUS [None]
  - RASH GENERALISED [None]
